FAERS Safety Report 5920913-9 (Version None)
Quarter: 2008Q4

REPORT INFORMATION
  Report Type: 
  Country: None (occurrence: None)
  Receive Date: 20081015
  Receipt Date: 20081015
  Transmission Date: 20090506
  Serious: Yes (Other)
  Sender: FDA-Public Use
  Company Number: None

PATIENT
  Sex: Female
  Weight: 81.6475 kg

DRUGS (1)
  1. AVELOX [Suspect]
     Indication: SINUSITIS
     Dosage: 1 TABLET 1 PER DAY PO
     Route: 048
     Dates: start: 20080808, end: 20080809

REACTIONS (8)
  - ABDOMINAL PAIN UPPER [None]
  - ANXIETY [None]
  - ASTHMA [None]
  - DRUG HYPERSENSITIVITY [None]
  - FATIGUE [None]
  - HEART RATE IRREGULAR [None]
  - INSOMNIA [None]
  - PANIC ATTACK [None]
